FAERS Safety Report 9502862 (Version 2)
Quarter: 2013Q3

REPORT INFORMATION
  Report Type: Report from Study
  Country: JP (occurrence: JP)
  Receive Date: 20130906
  Receipt Date: 20130930
  Transmission Date: 20140515
  Serious: Yes (Hospitalization)
  Sender: FDA-Public Use
  Company Number: JP-JNJFOC-20130817289

PATIENT
  Age: 66 Year
  Sex: Male
  Weight: 62.2 kg

DRUGS (14)
  1. PALIPERIDONE PALMITATE [Suspect]
     Indication: SCHIZOPHRENIA
     Dosage: IN RIGHT DELTOID
     Route: 030
     Dates: start: 20130507
  2. PALIPERIDONE PALMITATE [Suspect]
     Indication: SCHIZOPHRENIA
     Dosage: IN LEFT DELTOID
     Route: 030
     Dates: start: 20130430
  3. PALIPERIDONE PALMITATE [Suspect]
     Indication: SCHIZOPHRENIA
     Dosage: IN LEFT GLUTEUS
     Route: 030
     Dates: start: 20130730
  4. PALIPERIDONE PALMITATE [Suspect]
     Indication: SCHIZOPHRENIA
     Dosage: IN LEFT GLUTEUS
     Route: 030
     Dates: start: 20130604
  5. PALIPERIDONE PALMITATE [Suspect]
     Indication: SCHIZOPHRENIA
     Route: 030
  6. PANTETHINE [Concomitant]
     Indication: CONSTIPATION
     Route: 048
  7. MECOBALAMIN [Concomitant]
     Indication: BACK PAIN
     Route: 048
  8. TIZANIDINE [Concomitant]
     Indication: TORTICOLLIS
     Route: 048
  9. SENNOSIDE A-B [Concomitant]
     Indication: CONSTIPATION
     Route: 048
     Dates: end: 20130603
  10. SENNOSIDE A-B [Concomitant]
     Indication: CONSTIPATION
     Route: 048
     Dates: start: 20130604
  11. SENNOSIDE A-B [Concomitant]
     Indication: CONSTIPATION
     Route: 048
     Dates: start: 20130604
  12. SENNOSIDE A-B [Concomitant]
     Indication: CONSTIPATION
     Route: 048
     Dates: end: 20130603
  13. MAGNESIUM OXIDE [Concomitant]
     Indication: CONSTIPATION
     Route: 048
     Dates: start: 20130521, end: 20130603
  14. MAGNESIUM OXIDE [Concomitant]
     Indication: CONSTIPATION
     Route: 048
     Dates: start: 20130604

REACTIONS (4)
  - Anxiety [Recovered/Resolved]
  - Tension [Recovered/Resolved]
  - Depressed mood [Recovered/Resolved]
  - Agitation [Recovered/Resolved]
